FAERS Safety Report 4407111-5 (Version None)
Quarter: 2004Q3

REPORT INFORMATION
  Report Type: 
  Country: None (occurrence: None)
  Receive Date: 20040721
  Receipt Date: 20040707
  Transmission Date: 20050211
  Serious: Yes (Hospitalization)
  Sender: FDA-Public Use
  Company Number: US_0404102614

PATIENT
  Age: 75 Year
  Sex: Female

DRUGS (11)
  1. EVISTA [Suspect]
  2. FOSAMAX [Concomitant]
  3. MIACALCIN [Concomitant]
  4. FUROSEMIDE [Concomitant]
  5. ACETYLSALICYLIC ACID SRT [Concomitant]
  6. LIPITOR [Concomitant]
  7. PRILOSEC [Concomitant]
  8. PAXIL [Concomitant]
  9. RESTORIL [Concomitant]
  10. VITAMIN B-12 [Concomitant]
  11. ATENOLOL [Concomitant]

REACTIONS (2)
  - OEDEMA [None]
  - TIBIA FRACTURE [None]
